FAERS Safety Report 5567401-X (Version None)
Quarter: 2007Q4

REPORT INFORMATION
  Report Type: 
  Country: None (occurrence: None)
  Receive Date: 20071214
  Receipt Date: 20071204
  Transmission Date: 20080405
  Serious: Yes (Death)
  Sender: FDA-Public Use
  Company Number: 2007AL005190

PATIENT
  Age: 23 Year
  Sex: Male

DRUGS (8)
  1. TEMAZEPAM [Suspect]
  2. FENTANYL [Concomitant]
  3. PIRITON [Concomitant]
  4. CYCLIZINE [Concomitant]
  5. FENTANYL [Concomitant]
  6. ORAMORPH SR [Concomitant]
  7. PREDNISOLONE [Concomitant]
  8. DIAZEPAM [Concomitant]

REACTIONS (18)
  - AMNESIA [None]
  - CHILLS [None]
  - CROHN'S DISEASE [None]
  - DIZZINESS [None]
  - DRUG INTOLERANCE [None]
  - DRUG TOXICITY [None]
  - DRY MOUTH [None]
  - DYSARTHRIA [None]
  - DYSPNOEA [None]
  - HEADACHE [None]
  - HYPERHIDROSIS [None]
  - HYPERSENSITIVITY [None]
  - INJURY [None]
  - OVERDOSE [None]
  - PHOTOPHOBIA [None]
  - PNEUMONIA [None]
  - PRURITUS [None]
  - VISION BLURRED [None]
